FAERS Safety Report 5215984-1 (Version None)
Quarter: 2007Q1

REPORT INFORMATION
  Report Type: 
  Country: None (occurrence: None)
  Receive Date: 20070123
  Receipt Date: 20070115
  Transmission Date: 20070707
  Serious: Yes (Other)
  Sender: FDA-Public Use
  Company Number: GB-SANOFI-SYNTHELABO-A01200700507

PATIENT
  Age: 28 Year
  Sex: Female

DRUGS (1)
  1. PLAQUENIL [Suspect]
     Route: 048

REACTIONS (2)
  - OTOTOXICITY [None]
  - PANCREATITIS ACUTE [None]
